FAERS Safety Report 9182514 (Version 1)
Quarter: 2013Q1

REPORT INFORMATION
  Report Type: Spontaneous
  Country: US (occurrence: None)
  Receive Date: 20130321
  Receipt Date: 20130321
  Transmission Date: 20140127
  Serious: Yes (Disabling)
  Sender: FDA-Public Use
  Company Number: None

PATIENT
  Sex: Female
  Weight: 68.04 kg

DRUGS (1)
  1. POZACH [Suspect]
     Indication: DEPRESSION
     Dosage: 1 2XDAY M/N
     Route: 048
     Dates: start: 20040423

REACTIONS (2)
  - Headache [None]
  - Asthma [None]
